FAERS Safety Report 18437470 (Version 1)
Quarter: 2020Q4

REPORT INFORMATION
  Report Type: Spontaneous
  Country: TR (occurrence: TR)
  Receive Date: 20201028
  Receipt Date: 20201028
  Transmission Date: 20210114
  Serious: Yes (Other)
  Sender: FDA-Public Use
  Company Number: TR-SA-2020SA296944

PATIENT

DRUGS (1)
  1. ALEMTUZUMAB [Suspect]
     Active Substance: ALEMTUZUMAB
     Indication: RELAPSING-REMITTING MULTIPLE SCLEROSIS
     Dosage: SECOND COURSE

REACTIONS (5)
  - Hypertension [Unknown]
  - Loss of consciousness [Unknown]
  - Hemiplegia [Unknown]
  - Headache [Unknown]
  - Cerebral haemorrhage [Unknown]
